FAERS Safety Report 9656027 (Version 1)
Quarter: 2013Q4

REPORT INFORMATION
  Report Type: Spontaneous
  Country: US (occurrence: None)
  Receive Date: 20131029
  Receipt Date: 20131029
  Transmission Date: 20140711
  Serious: Yes (Disabling)
  Sender: FDA-Public Use
  Company Number: None

PATIENT
  Age: 12 Year
  Sex: Male
  Weight: 45.36 kg

DRUGS (1)
  1. METHYLPHENIDATE [Suspect]

REACTIONS (5)
  - Impulse-control disorder [None]
  - Educational problem [None]
  - Drug ineffective [None]
  - Product quality issue [None]
  - Product substitution issue [None]
